FAERS Safety Report 10036495 (Version 2)
Quarter: 2014Q2

REPORT INFORMATION
  Report Type: Spontaneous
  Country: US (occurrence: US)
  Receive Date: 20140326
  Receipt Date: 20140424
  Transmission Date: 20141212
  Serious: Yes (Other)
  Sender: FDA-Public Use
  Company Number: US-009507513-1403USA011863

PATIENT
  Sex: Female

DRUGS (1)
  1. NEXPLANON [Suspect]

REACTIONS (1)
  - Adverse event [Not Recovered/Not Resolved]
